FAERS Safety Report 15019387 (Version 1)
Quarter: 2018Q2

REPORT INFORMATION
  Report Type: Report from Study
  Country: CL (occurrence: CL)
  Receive Date: 20180617
  Receipt Date: 20180617
  Transmission Date: 20180711
  Serious: Yes (Other)
  Sender: FDA-Public Use
  Company Number: PHHY2018CL011348

PATIENT
  Age: 14 Year
  Sex: Female
  Weight: 48 kg

DRUGS (1)
  1. OMNITROPE [Suspect]
     Active Substance: SOMATROPIN
     Indication: GROWTH FAILURE
     Dosage: 1.1 UG, QD, (3.3 IU-10 MG)
     Route: 058
     Dates: start: 20180522

REACTIONS (6)
  - Pallor [Unknown]
  - Seizure [Unknown]
  - Loss of consciousness [Recovered/Resolved]
  - Musculoskeletal stiffness [Unknown]
  - Syncope [Recovered/Resolved]
  - Peripheral coldness [Unknown]

NARRATIVE: CASE EVENT DATE: 20180522
